FAERS Safety Report 7402261-3 (Version None)
Quarter: 2011Q2

REPORT INFORMATION
  Report Type: 
  Country: None (occurrence: None)
  Receive Date: 20110408
  Receipt Date: 20110314
  Transmission Date: 20111010
  Serious: No
  Sender: FDA-Public Use
  Company Number: US-B.I. PHARMACEUTICALS,INC./RIDGEFIELD-2011-BP-08217BP

PATIENT
  Sex: Female

DRUGS (8)
  1. ZETIA [Concomitant]
     Indication: BLOOD CHOLESTEROL INCREASED
     Dosage: 10 MG
  2. METOPROLOL [Concomitant]
     Indication: ATRIAL FIBRILLATION
     Dosage: 100 MG
  3. SIMVASTATIN [Concomitant]
     Indication: BLOOD CHOLESTEROL INCREASED
     Dosage: 10 MG
  4. PRADAXA [Suspect]
     Indication: ATRIAL FIBRILLATION
     Dosage: 300 MG
     Route: 048
     Dates: start: 20110312
  5. PREDNISONE [Concomitant]
     Indication: TEMPORAL ARTERITIS
     Dosage: 60 MG
     Dates: start: 20110310
  6. SYNTHROID [Concomitant]
     Indication: HYPOTHYROIDISM
     Dosage: 112 MCG
  7. CITRACAL D [Concomitant]
     Indication: SUPPLEMENTATION THERAPY
     Dosage: 650MG/500IU: 1890MG/500IU
  8. Z-BEC [Concomitant]
     Indication: SUPPLEMENTATION THERAPY
     Dosage: 1 GD

REACTIONS (4)
  - ERUCTATION [None]
  - ABDOMINAL DISTENSION [None]
  - ABDOMINAL DISCOMFORT [None]
  - DIARRHOEA [None]
